FAERS Safety Report 4517323-8 (Version None)
Quarter: 2004Q4

REPORT INFORMATION
  Report Type: 
  Country: None (occurrence: None)
  Receive Date: 20041007
  Receipt Date: 20031112
  Transmission Date: 20050328
  Serious: Yes (Death)
  Sender: FDA-Public Use
  Company Number: 2003-11-0692

PATIENT
  Age: 66 Year
  Sex: Male

DRUGS (4)
  1. TEMOZOLOMIDE CAPSULES [Suspect]
     Indication: MALIGNANT MELANOMA
     Dosage: ORAL
     Route: 048
  2. TEMOZOLOMIDE CAPSULES [Suspect]
     Indication: METASTASES TO LIVER
     Dosage: ORAL
     Route: 048
  3. THALIDOMIDE CAPSULES [Suspect]
     Indication: MALIGNANT MELANOMA
     Dates: start: 20021018, end: 20030701
  4. THALIDOMIDE CAPSULES [Suspect]
     Indication: METASTASES TO LIVER
     Dates: start: 20021018, end: 20030701

REACTIONS (1)
  - DISEASE PROGRESSION [None]
